FAERS Safety Report 7233039-1 (Version None)
Quarter: 2011Q1

REPORT INFORMATION
  Report Type: 
  Country: None (occurrence: None)
  Receive Date: 20110119
  Receipt Date: 20110113
  Transmission Date: 20110831
  Serious: Yes (Hospitalization, Other)
  Sender: FDA-Public Use
  Company Number: US-ASTRAZENECA-2006UW03653

PATIENT
  Age: 18844 Day
  Sex: Male
  Weight: 89.8 kg

DRUGS (39)
  1. SEROQUEL [Suspect]
     Indication: STRESS
     Route: 048
     Dates: start: 20030328, end: 20050401
  2. SEROQUEL [Suspect]
     Dosage: FOUR TABLETS BY MOUTH AT BEDTIME AND TAKE ONE TABLET EVERY 4 HOURS AS NEEDED FOR ANXIETY
     Route: 048
     Dates: start: 20030328
  3. CLOZARIL [Concomitant]
     Dosage: 4 TO 5 A DAY
     Dates: start: 20040101, end: 20050101
  4. PPIROXICAM [Concomitant]
     Indication: ARTHRALGIA
     Route: 048
     Dates: start: 20030801
  5. METFORMIN HCL [Concomitant]
     Route: 048
  6. PRILOSEC [Concomitant]
     Indication: GASTROOESOPHAGEAL REFLUX DISEASE
     Route: 048
     Dates: start: 20040719
  7. SALSALATE [Concomitant]
     Route: 048
     Dates: start: 20070719
  8. SEROQUEL [Suspect]
     Dosage: FOUR TABLETS BY MOUTH AT BEDTIME AND TAKE ONE TABLET EVERY 4 HOURS AS NEEDED FOR ANXIETY
     Route: 048
     Dates: start: 20030328
  9. DILTIAZEM (INWOOD) [Concomitant]
     Indication: BLOOD PRESSURE
     Route: 048
     Dates: start: 20030328
  10. METFORMIN HCL [Concomitant]
     Route: 048
     Dates: start: 20040719
  11. SALSALATE [Concomitant]
     Indication: BACK PAIN
     Route: 048
     Dates: start: 20050519
  12. SALSALATE [Concomitant]
     Indication: INFLAMMATION
     Route: 048
     Dates: start: 20050519
  13. LOPID [Concomitant]
     Indication: HYPERLIPIDAEMIA
     Route: 048
     Dates: start: 20040701
  14. SEROQUEL [Suspect]
     Indication: ANXIETY
     Route: 048
     Dates: start: 20030328, end: 20050401
  15. PPIROXICAM [Concomitant]
     Indication: BACK PAIN
     Route: 048
     Dates: start: 20030801
  16. GLYBURIDE [Concomitant]
     Indication: DIABETES MELLITUS
     Route: 048
     Dates: start: 20030910
  17. SALSALATE [Concomitant]
     Route: 048
     Dates: start: 20070719
  18. SEROQUEL [Suspect]
     Indication: DEPRESSION
     Route: 048
     Dates: start: 20030328, end: 20050401
  19. ZOLOFT [Concomitant]
     Dosage: ONE AND ONE-HALF TABLETS BY MOUTH EVERY DAY
     Route: 048
     Dates: start: 20050217
  20. DILTIAZEM (INWOOD) [Concomitant]
     Route: 048
     Dates: start: 20030818
  21. DILTIAZEM (INWOOD) [Concomitant]
     Route: 048
     Dates: start: 20030818
  22. TRAMADOL [Concomitant]
     Indication: PAIN
     Route: 048
     Dates: start: 20030521
  23. HYDROCHLOROTHIAZIDE [Concomitant]
     Indication: FLUID RETENTION
     Route: 048
     Dates: start: 20030818
  24. HYDROCHLOROTHIAZIDE [Concomitant]
     Indication: BLOOD PRESSURE
     Route: 048
     Dates: start: 20030818
  25. INDOMETHACIN [Concomitant]
     Route: 048
     Dates: start: 20030328
  26. SILDENAFIL CITRATE [Concomitant]
     Route: 048
     Dates: start: 20040719
  27. METFORMIN HCL [Concomitant]
     Indication: DIABETES MELLITUS
     Route: 048
     Dates: start: 20030818
  28. ZIPRASIDONE HCL/GEODON [Concomitant]
     Indication: AFFECTIVE DISORDER
     Route: 048
     Dates: start: 20050429
  29. SEROQUEL [Suspect]
     Dosage: FOUR TABLETS BY MOUTH AT BEDTIME AND TAKE ONE TABLET EVERY 4 HOURS AS NEEDED FOR ANXIETY
     Route: 048
     Dates: start: 20030328
  30. RISPERDAL [Concomitant]
     Indication: DEPRESSION
     Dates: start: 20040101, end: 20060901
  31. RISPERDAL [Concomitant]
     Indication: STRESS
     Dates: start: 20040101, end: 20060901
  32. RANITIDINE [Concomitant]
     Indication: ABDOMINAL DISCOMFORT
     Route: 048
     Dates: start: 20040501
  33. ZOLOFT [Concomitant]
     Indication: AFFECTIVE DISORDER
     Dosage: TOTAL DAILY DOSE 100 MG
     Dates: start: 20040101
  34. RISPERDAL [Concomitant]
     Route: 048
     Dates: start: 20050317
  35. RISPERDAL [Concomitant]
     Route: 048
     Dates: start: 20050317
  36. DILTIAZEM (INWOOD) [Concomitant]
     Indication: CARDIAC DISORDER
     Route: 048
     Dates: start: 20030328
  37. POTASSIUM CHLORIDE [Concomitant]
     Indication: SUPPLEMENTATION THERAPY
     Route: 048
     Dates: start: 20030901
  38. SALSALATE [Concomitant]
     Indication: PAIN
     Route: 048
     Dates: start: 20050519
  39. SALSALATE [Concomitant]
     Route: 048
     Dates: start: 20070719

REACTIONS (10)
  - POOR PERIPHERAL CIRCULATION [None]
  - HYPERGLYCAEMIA [None]
  - MYOCARDIAL INFARCTION [None]
  - CARDIAC DISORDER [None]
  - CORONARY ARTERY DISEASE [None]
  - EMOTIONAL DISTRESS [None]
  - TYPE 2 DIABETES MELLITUS [None]
  - ERECTILE DYSFUNCTION [None]
  - ANGINA UNSTABLE [None]
  - GASTROOESOPHAGEAL REFLUX DISEASE [None]
